FAERS Safety Report 18563800 (Version 1)
Quarter: 2020Q4

REPORT INFORMATION
  Report Type: Spontaneous
  Country: US (occurrence: US)
  Receive Date: 20201127
  Receipt Date: 20201127
  Transmission Date: 20210114
  Serious: Yes (Other)
  Sender: FDA-Public Use
  Company Number: None

PATIENT
  Age: 87 Year
  Sex: Male
  Weight: 64.41 kg

DRUGS (5)
  1. ROSUSTATIN [Concomitant]
  2. DOXYCYLINE HYCLATE 100MG TAB EP [Suspect]
     Active Substance: DOXYCYCLINE HYCLATE
     Indication: BACTERIAL INFECTION
     Route: 048
     Dates: start: 20200823, end: 20200825
  3. ASPIRIN 81 MG [Concomitant]
     Active Substance: ASPIRIN
  4. CLOPIDOGREL [Concomitant]
     Active Substance: CLOPIDOGREL BISULFATE
  5. LISINOPRIL. [Concomitant]
     Active Substance: LISINOPRIL

REACTIONS (4)
  - Confusional state [None]
  - Sluggishness [None]
  - Mental disorder [None]
  - Feeling abnormal [None]

NARRATIVE: CASE EVENT DATE: 20200824
